FAERS Safety Report 21494615 (Version 1)
Quarter: 2022Q4

REPORT INFORMATION
  Report Type: Spontaneous
  Country: CA (occurrence: CA)
  Receive Date: 20221021
  Receipt Date: 20221021
  Transmission Date: 20230112
  Serious: Yes (Life-Threatening, Disabling)
  Sender: FDA-Public Use
  Company Number: CA-ANIPHARMA-2022-CA-002090

PATIENT
  Age: 57 Year
  Sex: Female
  Weight: 88 kg

DRUGS (6)
  1. CANDESARTAN CILEXETIL [Suspect]
     Active Substance: CANDESARTAN CILEXETIL
     Indication: Hypertension
     Dosage: 16 MG UNK
     Route: 065
  2. COSENTYX [Suspect]
     Active Substance: SECUKINUMAB
     Dosage: 300 MG UNK / 300 MG MONTH / 300 MG Q2WK / UNK
     Route: 065
  3. PERINDOPRIL [Suspect]
     Active Substance: PERINDOPRIL
     Route: 065
  4. DASATINIB [Concomitant]
     Active Substance: DASATINIB
     Route: 065
  5. BETAMETHASONE VALERATE [Concomitant]
     Active Substance: BETAMETHASONE VALERATE
     Route: 065
  6. DOVONEX [Concomitant]
     Active Substance: CALCIPOTRIENE
     Route: 065

REACTIONS (12)
  - Inappropriate schedule of product administration [Unknown]
  - Odynophagia [Unknown]
  - Oropharyngeal pain [Unknown]
  - Philadelphia positive chronic myeloid leukaemia [Unknown]
  - Angioedema [Unknown]
  - COVID-19 [Unknown]
  - Cough [Unknown]
  - Dysarthria [Unknown]
  - Dysphagia [Unknown]
  - Fatigue [Unknown]
  - Folliculitis [Unknown]
  - Generalised oedema [Unknown]
